FAERS Safety Report 25752306 (Version 1)
Quarter: 2025Q3

REPORT INFORMATION
  Report Type: Spontaneous
  Country: US (occurrence: US)
  Receive Date: 20250902
  Receipt Date: 20250902
  Transmission Date: 20251021
  Serious: Yes (Death, Other)
  Sender: AMGEN
  Company Number: US-AMGEN-USASP2025174194

PATIENT
  Age: 38 Year
  Sex: Male

DRUGS (29)
  1. BLINATUMOMAB [Suspect]
     Active Substance: BLINATUMOMAB
     Indication: Acute lymphocytic leukaemia recurrent
     Route: 065
  2. BLINATUMOMAB [Suspect]
     Active Substance: BLINATUMOMAB
     Route: 065
     Dates: start: 20240828, end: 2024
  3. BLINATUMOMAB [Suspect]
     Active Substance: BLINATUMOMAB
     Route: 065
     Dates: start: 20241021, end: 2024
  4. BLINATUMOMAB [Suspect]
     Active Substance: BLINATUMOMAB
     Route: 065
     Dates: start: 20241217
  5. RITUXIMAB [Suspect]
     Active Substance: RITUXIMAB
     Indication: B-cell type acute leukaemia
     Route: 065
     Dates: start: 202209, end: 202305
  6. PREDNISONE [Suspect]
     Active Substance: PREDNISONE
     Indication: B-cell type acute leukaemia
     Route: 065
     Dates: start: 202306, end: 202402
  7. CYCLOPHOSPHAMIDE [Concomitant]
     Active Substance: CYCLOPHOSPHAMIDE
     Indication: B-cell type acute leukaemia
     Dates: start: 202209, end: 202305
  8. CYCLOPHOSPHAMIDE [Concomitant]
     Active Substance: CYCLOPHOSPHAMIDE
     Dates: start: 2024
  9. CYCLOPHOSPHAMIDE [Concomitant]
     Active Substance: CYCLOPHOSPHAMIDE
     Dates: start: 20240828
  10. CYCLOPHOSPHAMIDE [Concomitant]
     Active Substance: CYCLOPHOSPHAMIDE
     Dates: start: 20241021
  11. VINCRISTINE [Concomitant]
     Active Substance: VINCRISTINE
     Indication: B-cell type acute leukaemia
     Dates: start: 202209, end: 202305
  12. VINCRISTINE [Concomitant]
     Active Substance: VINCRISTINE
     Dates: start: 2024
  13. VINCRISTINE [Concomitant]
     Active Substance: VINCRISTINE
     Dates: start: 20240828
  14. VINCRISTINE [Concomitant]
     Active Substance: VINCRISTINE
     Dates: start: 20241021
  15. DOXORUBICIN [Concomitant]
     Active Substance: DOXORUBICIN
     Indication: B-cell type acute leukaemia
     Dates: start: 202209, end: 202305
  16. DEXAMETHASONE [Concomitant]
     Active Substance: DEXAMETHASONE
     Indication: B-cell type acute leukaemia
     Dates: start: 202209, end: 202305
  17. DEXAMETHASONE [Concomitant]
     Active Substance: DEXAMETHASONE
     Indication: Immune effector cell-associated neurotoxicity syndrome
     Dates: start: 2024
  18. DEXAMETHASONE [Concomitant]
     Active Substance: DEXAMETHASONE
     Dates: start: 20240828
  19. DEXAMETHASONE [Concomitant]
     Active Substance: DEXAMETHASONE
     Dates: start: 20241021
  20. DEXAMETHASONE [Concomitant]
     Active Substance: DEXAMETHASONE
     Route: 040
     Dates: start: 2024
  21. METHOTREXATE [Concomitant]
     Active Substance: METHOTREXATE
     Indication: B-cell type acute leukaemia
     Route: 029
     Dates: start: 202209, end: 202305
  22. METHOTREXATE [Concomitant]
     Active Substance: METHOTREXATE
     Dates: start: 202306, end: 202402
  23. CYTARABINE [Concomitant]
     Active Substance: CYTARABINE
     Indication: B-cell type acute leukaemia
     Route: 029
     Dates: start: 202209, end: 202305
  24. MERCAPTOPURINE [Concomitant]
     Active Substance: MERCAPTOPURINE
     Indication: B-cell type acute leukaemia
     Dates: start: 202306, end: 202402
  25. ONCOVIN [Concomitant]
     Active Substance: VINCRISTINE SULFATE
     Indication: B-cell type acute leukaemia
     Dates: start: 202306, end: 202402
  26. INOTUZUMAB OZOGAMICIN [Concomitant]
     Active Substance: INOTUZUMAB OZOGAMICIN
     Indication: Acute lymphocytic leukaemia recurrent
     Route: 065
     Dates: start: 2024
  27. INOTUZUMAB OZOGAMICIN [Concomitant]
     Active Substance: INOTUZUMAB OZOGAMICIN
     Dates: start: 20240828
  28. INOTUZUMAB OZOGAMICIN [Concomitant]
     Active Substance: INOTUZUMAB OZOGAMICIN
     Dates: start: 20241021
  29. VENETOCLAX [Concomitant]
     Active Substance: VENETOCLAX
     Indication: B-cell type acute leukaemia
     Route: 065
     Dates: start: 20241217

REACTIONS (10)
  - Death [Fatal]
  - Immune effector cell-associated neurotoxicity syndrome [Unknown]
  - Acute lymphocytic leukaemia recurrent [Recovered/Resolved]
  - Mononeuropathy [Not Recovered/Not Resolved]
  - Central nervous system leukaemia [Unknown]
  - Metastases to meninges [Not Recovered/Not Resolved]
  - Hydrocephalus [Unknown]
  - Cytokine release syndrome [Unknown]
  - Drug effective for unapproved indication [Unknown]
  - Off label use [Unknown]

NARRATIVE: CASE EVENT DATE: 20220901
